FAERS Safety Report 13188340 (Version 2)
Quarter: 2017Q2

REPORT INFORMATION
  Report Type: Spontaneous
  Country: US (occurrence: US)
  Receive Date: 20170206
  Receipt Date: 20170424
  Transmission Date: 20170830
  Serious: Yes (Death, Hospitalization, Other)
  Sender: FDA-Public Use
  Company Number: US-ALEXION-A201700913

PATIENT
  Age: 70 Year
  Sex: Male

DRUGS (4)
  1. SOLIRIS [Suspect]
     Active Substance: ECULIZUMAB
     Indication: GLOMERULONEPHRITIS
     Dosage: 900 MG, QW
     Route: 042
     Dates: start: 20170127
  2. SOLIRIS [Suspect]
     Active Substance: ECULIZUMAB
     Indication: OFF LABEL USE
     Dosage: 900 MG, QW
     Route: 042
     Dates: start: 20170127
  3. PENICILLIN VK [Concomitant]
     Active Substance: PENICILLIN V POTASSIUM
     Indication: PRODUCT USED FOR UNKNOWN INDICATION
     Route: 065
  4. VORICONAZOLE. [Concomitant]
     Active Substance: VORICONAZOLE
     Indication: HISTOPLASMOSIS
     Route: 065

REACTIONS (13)
  - Chills [Unknown]
  - Hypotension [Unknown]
  - Acute myocardial infarction [Fatal]
  - Rash [Unknown]
  - Nasal congestion [Unknown]
  - Ventricular tachycardia [Fatal]
  - Herpes zoster [Unknown]
  - Pyrexia [Unknown]
  - Haemoglobin decreased [Unknown]
  - Malaise [Unknown]
  - Cough [Unknown]
  - Off label use [Unknown]
  - Nausea [Unknown]

NARRATIVE: CASE EVENT DATE: 20170128
